APPROVED DRUG PRODUCT: PREXXARTAN
Active Ingredient: VALSARTAN
Strength: 4MG/ML **Federal Register determination that product was not discontinued or withdrawn for safety or effectiveness reasons**
Dosage Form/Route: SOLUTION;ORAL
Application: N209139 | Product #001
Applicant: CARMEL BIOSCIENCES INC
Approved: Dec 19, 2017 | RLD: Yes | RS: No | Type: DISCN